FAERS Safety Report 25505507 (Version 1)
Quarter: 2025Q3

REPORT INFORMATION
  Report Type: Spontaneous
  Country: US (occurrence: US)
  Receive Date: 20250702
  Receipt Date: 20250702
  Transmission Date: 20251021
  Serious: No
  Sender: AMGEN
  Company Number: US-AMGEN-USASP2025128649

PATIENT

DRUGS (1)
  1. PROLIA [Suspect]
     Active Substance: DENOSUMAB
     Indication: Product used for unknown indication
     Route: 065

REACTIONS (4)
  - Product storage error [Unknown]
  - Intercepted product administration error [Unknown]
  - Incorrect disposal of product [Unknown]
  - Refusal of treatment by relative [Unknown]

NARRATIVE: CASE EVENT DATE: 20250626
